FAERS Safety Report 7447615-4 (Version None)
Quarter: 2011Q2

REPORT INFORMATION
  Report Type: 
  Country: None (occurrence: None)
  Receive Date: 20110429
  Receipt Date: 20110112
  Transmission Date: 20111010
  Serious: No
  Sender: FDA-Public Use
  Company Number: US-ASTRAZENECA-2011SE02248

PATIENT
  Sex: Female

DRUGS (8)
  1. SYMBICORT [Concomitant]
  2. TRIAMT [Concomitant]
  3. NEXIUM [Suspect]
     Route: 048
  4. NASONEX [Concomitant]
  5. ALBUTEROL [Concomitant]
  6. SINGULAIR [Concomitant]
  7. XOPENEX [Concomitant]
  8. ZYRTEC [Concomitant]

REACTIONS (1)
  - DRUG INTOLERANCE [None]
